FAERS Safety Report 11104660 (Version 1)
Quarter: 2015Q2

REPORT INFORMATION
  Report Type: Spontaneous
  Country: US (occurrence: US)
  Receive Date: 20150511
  Receipt Date: 20150511
  Transmission Date: 20150821
  Serious: Yes (Other)
  Sender: FDA-Public Use
  Company Number: US-FRI-1000076326

PATIENT
  Age: 44 Year
  Sex: Female

DRUGS (2)
  1. LINZESS [Suspect]
     Active Substance: LINACLOTIDE
     Indication: CONSTIPATION
     Dosage: 145MCG
     Dates: start: 201405
  2. LINZESS [Suspect]
     Active Substance: LINACLOTIDE
     Dosage: 290MCG
     Dates: end: 201503

REACTIONS (2)
  - Intentional product misuse [Recovered/Resolved]
  - Colitis ischaemic [Recovered/Resolved]

NARRATIVE: CASE EVENT DATE: 20150324
